FAERS Safety Report 24822830 (Version 1)
Quarter: 2025Q1

REPORT INFORMATION
  Report Type: Spontaneous
  Country: US (occurrence: US)
  Receive Date: 20250109
  Receipt Date: 20250109
  Transmission Date: 20250408
  Serious: Yes (Hospitalization, Other)
  Sender: NOVITIUM PHARMA
  Company Number: US-NOVITIUMPHARMA-2025USNVP00035

PATIENT
  Age: 68 Year
  Sex: Male

DRUGS (9)
  1. PREDNISONE [Suspect]
     Active Substance: PREDNISONE
     Indication: Lung transplant rejection
  2. PREDNISONE [Suspect]
     Active Substance: PREDNISONE
  3. ASPIRIN [Concomitant]
     Active Substance: ASPIRIN
     Indication: Transient ischaemic attack
  4. ASPIRIN [Concomitant]
     Active Substance: ASPIRIN
     Indication: Aortic stenosis
  5. CLOPIDOGREL [Concomitant]
     Active Substance: CLOPIDOGREL BISULFATE
     Indication: Transient ischaemic attack
  6. CLOPIDOGREL [Concomitant]
     Active Substance: CLOPIDOGREL BISULFATE
     Indication: Aortic stenosis
  7. AZATHIOPRINE [Concomitant]
     Active Substance: AZATHIOPRINE
  8. TACROLIMUS [Concomitant]
     Active Substance: TACROLIMUS
  9. Antithymocyte-globulin [anti-thymocyte globulin] [Concomitant]

REACTIONS (1)
  - Post transplant lymphoproliferative disorder [Recovered/Resolved]
